FAERS Safety Report 5907790-7 (Version None)
Quarter: 2008Q4

REPORT INFORMATION
  Report Type: 
  Country: None (occurrence: None)
  Receive Date: 20081003
  Receipt Date: 20080724
  Transmission Date: 20090506
  Serious: Yes (Hospitalization, Other)
  Sender: FDA-Public Use
  Company Number: US-PURDUE-USA_2008_0035239

PATIENT
  Sex: Male
  Weight: 100 kg

DRUGS (7)
  1. OXYCONTIN [Suspect]
     Indication: BACK PAIN
     Dosage: 80 MG, BID
     Dates: start: 19990501, end: 20001001
  2. VERAPAMIL [Concomitant]
     Indication: BLOOD PRESSURE
     Dosage: 240 MG, DAILY
  3. REGLAN [Concomitant]
  4. PERCOCET [Concomitant]
  5. TRAZODONE                          /00447702/ [Concomitant]
  6. CELEBREX [Concomitant]
  7. DURAGESIC-100 [Concomitant]

REACTIONS (4)
  - DEPRESSION [None]
  - NAUSEA [None]
  - NERVE INJURY [None]
  - WEIGHT DECREASED [None]
